FAERS Safety Report 4778555-7 (Version None)
Quarter: 2005Q3

REPORT INFORMATION
  Report Type: 
  Country: None (occurrence: None)
  Receive Date: 20050922
  Receipt Date: 20050909
  Transmission Date: 20060218
  Serious: Yes (Other)
  Sender: FDA-Public Use
  Company Number: 2005126988

PATIENT
  Age: 74 Year
  Sex: Female

DRUGS (1)
  1. ZITHROMAX [Suspect]
     Indication: VIRAL INFECTION
     Dosage: SEE IMAGE
     Dates: start: 20050729, end: 20050729

REACTIONS (2)
  - DYSGEUSIA [None]
  - WEIGHT DECREASED [None]
